FAERS Safety Report 8289124-9 (Version None)
Quarter: 2012Q2

REPORT INFORMATION
  Report Type: 
  Country: None (occurrence: None)
  Receive Date: 20120412
  Receipt Date: 20120402
  Transmission Date: 20120825
  Serious: Yes (Death, Life-Threatening, Hospitalization, Disabling, Other)
  Sender: FDA-Public Use
  Company Number: 2008AL011090

PATIENT
  Age: 69 Year
  Sex: Female

DRUGS (22)
  1. DIGOXIN [Suspect]
     Indication: TACHYCARDIA
     Dosage: 0.25 MG, QD, PO
     Route: 048
     Dates: start: 20071001
  2. LOPERAMIDE [Concomitant]
  3. TRIAMTERENE [Concomitant]
  4. COMBIVENT [Concomitant]
  5. AMLODIPINE [Concomitant]
  6. AMBIEN [Concomitant]
  7. LOVENOX [Concomitant]
  8. VITAMIN B COMPLEX CAP [Concomitant]
  9. LIPITOR [Concomitant]
  10. LOTREL [Concomitant]
  11. ZYVOX [Concomitant]
  12. LACTINEX [Concomitant]
  13. POTASSIUM CHLORIDE [Concomitant]
  14. NICOTINE [Concomitant]
  15. AMPICILLIN [Concomitant]
  16. FUROSEMIDE [Concomitant]
  17. LISINOPRIL [Concomitant]
  18. INSULIN [Concomitant]
  19. TYLENOL (CAPLET) [Concomitant]
  20. SEPTRA [Concomitant]
  21. LASIX [Concomitant]
  22. CALMOSEPTINE [Concomitant]

REACTIONS (44)
  - HYPOTENSION [None]
  - CARDIAC ARREST [None]
  - DECUBITUS ULCER [None]
  - SEPTIC SHOCK [None]
  - HAEMOGLOBIN DECREASED [None]
  - RESPIRATORY FAILURE [None]
  - BRADYCARDIA [None]
  - DIVERTICULUM [None]
  - RECTAL HAEMORRHAGE [None]
  - TOXICITY TO VARIOUS AGENTS [None]
  - CONVULSION [None]
  - CHRONIC OBSTRUCTIVE PULMONARY DISEASE [None]
  - CEREBROVASCULAR ACCIDENT [None]
  - HYPERCHOLESTEROLAEMIA [None]
  - MULTIPLE INJURIES [None]
  - DEPRESSION [None]
  - SINUS TACHYCARDIA [None]
  - HYPERTENSION [None]
  - PAIN [None]
  - PULMONARY EMBOLISM [None]
  - URINARY TRACT INFECTION [None]
  - AORTIC ANEURYSM [None]
  - PNEUMONIA [None]
  - MALAISE [None]
  - ECONOMIC PROBLEM [None]
  - VENTRICULAR TACHYCARDIA [None]
  - ATRIAL FIBRILLATION [None]
  - DUODENITIS [None]
  - GASTRITIS EROSIVE [None]
  - HYPOXIC-ISCHAEMIC ENCEPHALOPATHY [None]
  - OESOPHAGITIS [None]
  - UNEVALUABLE EVENT [None]
  - OLIGURIA [None]
  - TORSADE DE POINTES [None]
  - RENAL FAILURE ACUTE [None]
  - PULSELESS ELECTRICAL ACTIVITY [None]
  - GASTROINTESTINAL HAEMORRHAGE [None]
  - CORONARY ARTERY STENOSIS [None]
  - CORONARY ARTERY DISEASE [None]
  - HAEMODIALYSIS [None]
  - DUODENAL ULCER HAEMORRHAGE [None]
  - PSEUDOMONAS INFECTION [None]
  - DIABETES MELLITUS [None]
  - HAEMATOCRIT DECREASED [None]
